FAERS Safety Report 16404307 (Version 3)
Quarter: 2019Q3

REPORT INFORMATION
  Report Type: Spontaneous
  Country: US (occurrence: US)
  Receive Date: 20190607
  Receipt Date: 20190703
  Transmission Date: 20191004
  Serious: No
  Sender: FDA-Public Use
  Company Number: US-PFIZER INC-2019241203

PATIENT
  Age: 77 Year
  Sex: Female
  Weight: 88 kg

DRUGS (3)
  1. FLECTOR [Suspect]
     Active Substance: DICLOFENAC EPOLAMINE
     Indication: PAIN
     Dosage: UNK
     Dates: start: 201905
  2. AMLODIPINE [Concomitant]
     Active Substance: AMLODIPINE BESYLATE
     Indication: BLOOD PRESSURE MEASUREMENT
     Dosage: UNK
  3. FLECTOR [Suspect]
     Active Substance: DICLOFENAC EPOLAMINE
     Indication: PERIPHERAL SWELLING

REACTIONS (6)
  - Withdrawal syndrome [Unknown]
  - Gait disturbance [Unknown]
  - Foot deformity [Unknown]
  - Arthritis [Unknown]
  - Limb discomfort [Unknown]
  - Weight increased [Unknown]
